FAERS Safety Report 7644359-0 (Version None)
Quarter: 2011Q3

REPORT INFORMATION
  Report Type: 
  Country: None (occurrence: None)
  Receive Date: 20110729
  Receipt Date: 20110725
  Transmission Date: 20111222
  Serious: Yes (Death, Hospitalization)
  Sender: FDA-Public Use
  Company Number: US-ELI_LILLY_AND_COMPANY-US201008003029

PATIENT
  Sex: Female
  Weight: 146.94 kg

DRUGS (9)
  1. NAPROXEN (ALEVE) [Concomitant]
     Dosage: UNK, PRN
  2. TENORETIC [Concomitant]
     Dosage: UNK, QD
  3. PHENERGAN HCL [Concomitant]
     Dosage: 25 MG, PRN
  4. BYETTA [Suspect]
     Indication: TYPE 2 DIABETES MELLITUS
     Dosage: 10 MG, BID
     Dates: start: 20080229
  5. DARVON (HCL) [Concomitant]
     Dosage: 65 MG, PRN
  6. GLUCOPHAGE [Concomitant]
     Dosage: 1000 MG, EACH EVENING
  7. NEXIUM [Concomitant]
     Dosage: 40 MG, BID
  8. LISINOPRIL [Concomitant]
     Dosage: 40 MG, QD
  9. MULTIVITAMIN [Concomitant]
     Dosage: UNK, BID

REACTIONS (9)
  - MULTI-ORGAN FAILURE [None]
  - HYPOKALAEMIA [None]
  - CARDIAC ARREST [None]
  - SEPTIC SHOCK [None]
  - RENAL FAILURE ACUTE [None]
  - METABOLIC ACIDOSIS [None]
  - PANCREATITIS ACUTE [None]
  - DEATH [None]
  - ARRHYTHMIA [None]
